FAERS Safety Report 26042087 (Version 1)
Quarter: 2025Q4

REPORT INFORMATION
  Report Type: Other
  Country: US (occurrence: US)
  Receive Date: 20251113
  Receipt Date: 20251113
  Transmission Date: 20260117
  Serious: No
  Sender: CHEMI SPA
  Company Number: US-CHEMI SPA-2188462

PATIENT
  Age: 42 Year
  Sex: Female

DRUGS (2)
  1. TEMOZOLOMIDE [Suspect]
     Active Substance: TEMOZOLOMIDE
     Indication: Prolactin-producing pituitary tumour
  2. CABERGOLINE [Concomitant]
     Active Substance: CABERGOLINE

REACTIONS (3)
  - Off label use [Unknown]
  - Fatigue [Unknown]
  - Anaemia [Unknown]
